FAERS Safety Report 7184535-7 (Version None)
Quarter: 2010Q4

REPORT INFORMATION
  Report Type: 
  Country: None (occurrence: None)
  Receive Date: 20101222
  Receipt Date: 20101212
  Transmission Date: 20110411
  Serious: Yes (Hospitalization, Other)
  Sender: FDA-Public Use
  Company Number: MX-ELI_LILLY_AND_COMPANY-MX201008004275

PATIENT
  Age: 83 Year
  Sex: Female

DRUGS (2)
  1. HUMALOG MIX 75/25 [Suspect]
     Dosage: UNK, UNK
     Route: 058
     Dates: start: 20100406
  2. ENALAPRIL MALEATE [Concomitant]
     Indication: HYPERTENSION

REACTIONS (7)
  - CONSTIPATION [None]
  - FALL [None]
  - HERNIA [None]
  - HIP FRACTURE [None]
  - HYPOGLYCAEMIA [None]
  - INTESTINAL OPERATION [None]
  - URINARY TRACT INFECTION [None]
